FAERS Safety Report 23599500 (Version 2)
Quarter: 2024Q2

REPORT INFORMATION
  Report Type: Report from Study
  Country: CA (occurrence: None)
  Receive Date: 20240306
  Receipt Date: 20240419
  Transmission Date: 20240715
  Serious: Yes (Other)
  Sender: FDA-Public Use
  Company Number: 2024A052574

PATIENT
  Sex: Male

DRUGS (3)
  1. FASENRA [Suspect]
     Active Substance: BENRALIZUMAB
     Indication: Asthma
     Dosage: 30.0MG UNKNOWN
     Route: 058
     Dates: start: 20200918
  2. IPRATROPIUM [Concomitant]
     Active Substance: IPRATROPIUM
  3. VENTOLIN [Concomitant]
     Active Substance: ALBUTEROL SULFATE
     Dosage: AS REQUIRED

REACTIONS (6)
  - Hypertension [Recovering/Resolving]
  - Pulmonary congestion [Unknown]
  - Heart rate increased [Recovering/Resolving]
  - Tremor [Unknown]
  - Asthenia [Unknown]
  - Oxygen saturation decreased [Recovering/Resolving]
